FAERS Safety Report 8097846-8 (Version None)
Quarter: 2012Q1

REPORT INFORMATION
  Report Type: 
  Country: None (occurrence: None)
  Receive Date: 20120128
  Receipt Date: 20110816
  Transmission Date: 20120608
  Serious: No
  Sender: FDA-Public Use
  Company Number: US-ABBOTT-11P-163-0846490-00

PATIENT
  Sex: Female

DRUGS (3)
  1. TRAMADOL HCL [Concomitant]
     Indication: SCIATICA
  2. HUMIRA [Suspect]
     Indication: PSORIASIS
     Dates: start: 20110801
  3. HUMIRA [Suspect]
     Indication: PSORIATIC ARTHROPATHY
     Dates: end: 20101201

REACTIONS (2)
  - INFLUENZA [None]
  - SINUSITIS [None]
